FAERS Safety Report 5044677-9 (Version None)
Quarter: 2006Q3

REPORT INFORMATION
  Report Type: 
  Country: None (occurrence: None)
  Receive Date: 20060706
  Receipt Date: 20060417
  Transmission Date: 20061208
  Serious: Yes (Hospitalization)
  Sender: FDA-Public Use
  Company Number: JP-BOEHRINGER INGELHEIM PHARMACEUTICALS, INC.-2006-BP-04362NB

PATIENT
  Sex: Male
  Weight: 78 kg

DRUGS (8)
  1. SPIRIVA [Suspect]
     Indication: CHRONIC RESPIRATORY FAILURE
     Route: 055
     Dates: start: 20050725
  2. THEO-DUR [Suspect]
     Indication: CARDIAC ASTHMA
     Route: 048
     Dates: start: 20031226, end: 20060418
  3. ADALAT [Concomitant]
     Indication: HYPERTENSION
     Route: 048
     Dates: start: 20031226, end: 20060418
  4. MUCOSOLVAN [Concomitant]
     Indication: CARDIAC ASTHMA
     Route: 048
     Dates: start: 20031226, end: 20060418
  5. ONON [Concomitant]
     Indication: CARDIAC ASTHMA
     Route: 048
     Dates: start: 20040329, end: 20060418
  6. DIGOXIN [Concomitant]
     Indication: ARRHYTHMIA
     Route: 048
     Dates: start: 20060204, end: 20060410
  7. RISPERDAL [Concomitant]
     Indication: INSOMNIA
     Route: 048
     Dates: start: 20051225, end: 20060410
  8. KALGUT [Concomitant]
     Indication: CARDIAC FAILURE
     Route: 048
     Dates: start: 20040329, end: 20060418

REACTIONS (4)
  - ATRIAL FIBRILLATION [None]
  - HAEMATOCHEZIA [None]
  - INTESTINAL ISCHAEMIA [None]
  - INTESTINAL OBSTRUCTION [None]
